FAERS Safety Report 10276659 (Version 1)
Quarter: 2014Q3

REPORT INFORMATION
  Report Type: Report from Study
  Country: US (occurrence: US)
  Receive Date: 20140703
  Receipt Date: 20140703
  Transmission Date: 20150326
  Serious: Yes (Death, Hospitalization)
  Sender: FDA-Public Use
  Company Number: US-JNJFOC-20140701731

PATIENT
  Age: 20 Year
  Sex: Male
  Weight: 136.08 kg

DRUGS (2)
  1. FOLIC ACID. [Concomitant]
     Active Substance: FOLIC ACID
     Indication: RHEUMATOID ARTHRITIS
     Route: 065
  2. REMICADE [Suspect]
     Active Substance: INFLIXIMAB
     Indication: RHEUMATOID ARTHRITIS
     Dosage: STARTED TWO YEARS AGO
     Route: 042
     Dates: start: 2012

REACTIONS (2)
  - Deep vein thrombosis [Fatal]
  - Sepsis [Fatal]

NARRATIVE: CASE EVENT DATE: 201403
